FAERS Safety Report 6136819-9 (Version None)
Quarter: 2009Q1

REPORT INFORMATION
  Report Type: 
  Country: None (occurrence: None)
  Receive Date: 20090330
  Receipt Date: 20090318
  Transmission Date: 20090719
  Serious: Yes (Other)
  Sender: FDA-Public Use
  Company Number: NL-CELGENEUS-114-21880-09030317

PATIENT
  Sex: Female

DRUGS (2)
  1. REVLIMID [Suspect]
     Route: 048
     Dates: start: 20081013
  2. REVLIMID [Suspect]
     Route: 048

REACTIONS (3)
  - PLATELET COUNT DECREASED [None]
  - POLYNEUROPATHY [None]
  - RASH [None]
